FAERS Safety Report 23817888 (Version 2)
Quarter: 2024Q2

REPORT INFORMATION
  Report Type: Spontaneous
  Country: AT (occurrence: AT)
  Receive Date: 20240506
  Receipt Date: 20240610
  Transmission Date: 20240716
  Serious: Yes (Other)
  Sender: FDA-Public Use
  Company Number: AT-NOVOPROD-1212248

PATIENT
  Age: 77 Year
  Sex: Female

DRUGS (2)
  1. OZEMPIC [Suspect]
     Active Substance: SEMAGLUTIDE
     Indication: Glucose tolerance impaired
     Dosage: 1 MG
     Dates: start: 2022, end: 202309
  2. OZEMPIC [Suspect]
     Active Substance: SEMAGLUTIDE
     Indication: Body mass index increased
     Dosage: LOW DOSAGE
     Dates: start: 202404

REACTIONS (4)
  - Syncope [Recovered/Resolved]
  - Vertigo [Recovered/Resolved]
  - Discomfort [Recovered/Resolved]
  - Off label use [Unknown]

NARRATIVE: CASE EVENT DATE: 20220101
